FAERS Safety Report 13175284 (Version 1)
Quarter: 2017Q1

REPORT INFORMATION
  Report Type: Spontaneous
  Country: IT (occurrence: IT)
  Receive Date: 20170201
  Receipt Date: 20170201
  Transmission Date: 20170428
  Serious: Yes (Other)
  Sender: FDA-Public Use
  Company Number: IT-PFIZER INC-2016600337

PATIENT
  Age: 54 Year
  Sex: Male
  Weight: 74 kg

DRUGS (5)
  1. IRINOTECAN HCL [Suspect]
     Active Substance: IRINOTECAN HYDROCHLORIDE
     Indication: COLORECTAL ADENOCARCINOMA
     Dosage: 310 MG, CYCLIC
     Route: 042
     Dates: start: 20160407, end: 20160901
  2. OXALIPLATIN. [Suspect]
     Active Substance: OXALIPLATIN
     Indication: COLORECTAL ADENOCARCINOMA
     Dosage: 160 MG, CYCLIC
     Route: 042
     Dates: start: 20160407, end: 20160901
  3. LEVOFOLINIC ACID [Concomitant]
     Active Substance: LEVOLEUCOVORIN
     Dosage: 380 MG, UNK
     Route: 042
     Dates: start: 20160407, end: 20160901
  4. FLUOROURACIL. [Suspect]
     Active Substance: FLUOROURACIL
     Indication: COLORECTAL ADENOCARCINOMA
     Dosage: 4800 MG, CYCLIC
     Route: 042
     Dates: start: 20160407, end: 20160901
  5. ZUGLIMET [Concomitant]
     Active Substance: METFORMIN HYDROCHLORIDE
     Dosage: UNK

REACTIONS (1)
  - Conjunctivitis [Recovering/Resolving]

NARRATIVE: CASE EVENT DATE: 20160823
